FAERS Safety Report 23084865 (Version 1)
Quarter: 2023Q4

REPORT INFORMATION
  Report Type: Spontaneous
  Country: JP (occurrence: JP)
  Receive Date: 20231019
  Receipt Date: 20231019
  Transmission Date: 20240110
  Serious: Yes (Other)
  Sender: FDA-Public Use
  Company Number: JP-PFIZER INC-PV202300171537

PATIENT
  Age: 53 Year
  Sex: Male

DRUGS (3)
  1. VFEND [Suspect]
     Active Substance: VORICONAZOLE
     Dosage: UNK
     Dates: start: 201410, end: 201411
  2. VFEND [Suspect]
     Active Substance: VORICONAZOLE
     Dosage: UNK
     Dates: start: 201409, end: 202104
  3. VFEND [Suspect]
     Active Substance: VORICONAZOLE
     Dosage: UNK
     Dates: start: 201403, end: 202104

REACTIONS (5)
  - Squamous cell carcinoma of skin [Unknown]
  - Photosensitivity reaction [Unknown]
  - Actinic keratosis [Unknown]
  - Off label use [Unknown]
  - Product use issue [Unknown]
